FAERS Safety Report 4640122-3 (Version None)
Quarter: 2005Q2

REPORT INFORMATION
  Report Type: 
  Country: None (occurrence: None)
  Receive Date: 20050420
  Receipt Date: 20050307
  Transmission Date: 20051028
  Serious: Yes (Death)
  Sender: FDA-Public Use
  Company Number: JP-ROCHE-397612

PATIENT
  Age: 64 Year
  Sex: Male

DRUGS (15)
  1. TAMIFLU [Suspect]
     Route: 048
     Dates: start: 20050304, end: 20050306
  2. VEGETAMIN B [Concomitant]
     Route: 048
     Dates: start: 19940615
  3. NEULEPTIL [Concomitant]
     Route: 048
     Dates: start: 19940615
  4. SILECE [Concomitant]
     Route: 048
     Dates: start: 19940615
  5. SENNOSIDE [Concomitant]
     Route: 048
     Dates: start: 19940615
  6. HIRNAMIN [Concomitant]
     Route: 048
     Dates: start: 19940615
  7. CREMIN [Concomitant]
     Route: 048
     Dates: start: 19940615
  8. AKINETON [Concomitant]
     Route: 048
     Dates: start: 19940615
  9. TRIHEXYPHENIDYL HCL [Concomitant]
     Dosage: DRUG NAME REPORTED AS ^PYRAMISTIN^
     Route: 048
     Dates: start: 19940615
  10. SERENACE [Concomitant]
     Dosage: FIRST THERAPY: UKN 1994-JAN 2005, 4MG 3/DAY. SECOND THERAPY: UKN 1995-JAN 2005, 3MG, 3/DAY THIRD TH+
     Route: 048
     Dates: start: 19940615
  11. LODOPIN [Concomitant]
     Route: 048
     Dates: start: 19950615
  12. HIRNAMIN [Concomitant]
     Route: 048
     Dates: start: 19950615
  13. UNSPECIFIED DRUG [Concomitant]
     Dosage: DOSAGE ^500ML^ DRUG NAME REPORTED AS ^ESRON^
     Route: 042
  14. UNSPECIFIED DRUG [Concomitant]
     Indication: DRUG USE FOR UNKNOWN INDICATION
     Dosage: DOSAGE ^500ML^ DRUG NAME REPORTED AS ^OTUKA POCARI SWEAT^
     Route: 048
  15. WATER [Concomitant]
     Indication: DRUG USE FOR UNKNOWN INDICATION
     Dosage: DOSAGE REPORTED AS ^300ML^
     Route: 048

REACTIONS (4)
  - ABDOMINAL DISTENSION [None]
  - ATRIOVENTRICULAR BLOCK FIRST DEGREE [None]
  - CARDIO-RESPIRATORY ARREST [None]
  - RESPIRATION ABNORMAL [None]
